FAERS Safety Report 9476742 (Version 2)
Quarter: 2013Q3

REPORT INFORMATION
  Report Type: Spontaneous
  Country: US (occurrence: US)
  Receive Date: 20130826
  Receipt Date: 20130826
  Transmission Date: 20140515
  Serious: No
  Sender: FDA-Public Use
  Company Number: US-BRISTOL-MYERS SQUIBB COMPANY-18707455

PATIENT
  Age: 50 Year
  Sex: Male
  Weight: 111.56 kg

DRUGS (6)
  1. KENALOG-40 [Suspect]
     Indication: NECK PAIN
     Route: 008
  2. KENALOG-40 [Suspect]
     Indication: RADICULAR PAIN
     Route: 008
  3. METOPROLOL [Concomitant]
  4. HYDROCODONE [Concomitant]
  5. AMBIEN CR [Concomitant]
  6. RAPAFLO [Concomitant]

REACTIONS (10)
  - Asthenia [Unknown]
  - Pyrexia [Unknown]
  - Chills [Unknown]
  - Headache [Unknown]
  - Nausea [Unknown]
  - Vomiting [Unknown]
  - Vision blurred [Unknown]
  - Intraocular pressure increased [Unknown]
  - Purpura [Unknown]
  - Off label use [Unknown]
